FAERS Safety Report 7286164-3 (Version None)
Quarter: 2011Q1

REPORT INFORMATION
  Report Type: 
  Country: None (occurrence: None)
  Receive Date: 20110210
  Receipt Date: 20110111
  Transmission Date: 20110831
  Serious: No
  Sender: FDA-Public Use
  Company Number: US-BAYER-2011-004006

PATIENT
  Sex: Female
  Weight: 69 kg

DRUGS (2)
  1. LANSOPRAZOLE [Concomitant]
  2. ALEVE (CAPLET) [Suspect]
     Dosage: DAILY DOSE 440MG
     Route: 048

REACTIONS (1)
  - INSOMNIA [None]
